FAERS Safety Report 6385167-0 (Version None)
Quarter: 2009Q4

REPORT INFORMATION
  Report Type: 
  Country: None (occurrence: None)
  Receive Date: 20091002
  Receipt Date: 20080815
  Transmission Date: 20100525
  Serious: No
  Sender: FDA-Public Use
  Company Number: US-ASTRAZENECA-2005UW06357

PATIENT
  Age: 80 Year
  Sex: Female
  Weight: 59.9 kg

DRUGS (5)
  1. ARIMIDEX [Suspect]
     Indication: BREAST CANCER
     Route: 048
  2. ATENOLOL [Concomitant]
     Dosage: AS REQUIRED
  3. INDAPAMIDE [Concomitant]
  4. SYNTHROID [Concomitant]
  5. TIMOPTIC [Concomitant]

REACTIONS (4)
  - ARTHRALGIA [None]
  - ARTHRITIS [None]
  - BONE PAIN [None]
  - VEIN DISORDER [None]
